FAERS Safety Report 17527267 (Version 1)
Quarter: 2020Q1

REPORT INFORMATION
  Report Type: Spontaneous
  Country: US (occurrence: US)
  Receive Date: 20200311
  Receipt Date: 20200311
  Transmission Date: 20200409
  Serious: No
  Sender: FDA-Public Use
  Company Number: US-PFIZER INC-2020105020

PATIENT
  Sex: Female

DRUGS (4)
  1. TAXOL [Suspect]
     Active Substance: PACLITAXEL
     Dosage: UNK
     Dates: end: 2016
  2. TAXOL [Suspect]
     Active Substance: PACLITAXEL
     Dosage: UNK
     Dates: end: 2020
  3. CARBOPLATIN. [Suspect]
     Active Substance: CARBOPLATIN
     Dosage: UNK
     Dates: end: 2016
  4. CARBOPLATIN. [Suspect]
     Active Substance: CARBOPLATIN
     Dosage: UNK
     Dates: end: 2020

REACTIONS (3)
  - Neoplasm progression [Unknown]
  - Arthralgia [Unknown]
  - Fatigue [Unknown]

NARRATIVE: CASE EVENT DATE: 20180808
